FAERS Safety Report 7706613-3 (Version None)
Quarter: 2011Q3

REPORT INFORMATION
  Report Type: 
  Country: None (occurrence: None)
  Receive Date: 20110824
  Receipt Date: 20110812
  Transmission Date: 20111222
  Serious: Yes (Other)
  Sender: FDA-Public Use
  Company Number: US-ELI_LILLY_AND_COMPANY-US201108001652

PATIENT
  Sex: Female

DRUGS (7)
  1. FORTEO [Suspect]
     Dosage: 20 UG, QD
     Dates: start: 20110803, end: 20110807
  2. ATENOLOL [Concomitant]
  3. PAXIL [Concomitant]
  4. FISH OIL [Concomitant]
  5. ANTIHYPERTENSIVES [Concomitant]
  6. FORTEO [Suspect]
     Indication: OSTEOPOROSIS
     Dosage: 20 UG, QD
     Dates: start: 20110722, end: 20110731
  7. HYDROCHLOROTHIAZID [Concomitant]

REACTIONS (19)
  - GAIT DISTURBANCE [None]
  - PAIN IN EXTREMITY [None]
  - DIZZINESS [None]
  - MUSCLE SPASMS [None]
  - ABDOMINAL TENDERNESS [None]
  - INJECTION SITE PAIN [None]
  - NAUSEA [None]
  - MUSCULAR WEAKNESS [None]
  - MALAISE [None]
  - PAIN [None]
  - ABDOMINAL DISCOMFORT [None]
  - ARTHRALGIA [None]
  - DRUG DOSE OMISSION [None]
  - NEOPLASM MALIGNANT [None]
  - ARTHROPATHY [None]
  - DECREASED ACTIVITY [None]
  - ASTHENIA [None]
  - BONE PAIN [None]
  - VISION BLURRED [None]
